FAERS Safety Report 8092392-X (Version None)
Quarter: 2012Q1

REPORT INFORMATION
  Report Type: 
  Country: None (occurrence: None)
  Receive Date: 20120128
  Receipt Date: 20110823
  Transmission Date: 20120608
  Serious: No
  Sender: FDA-Public Use
  Company Number: US-ABBOTT-11P-163-0851081-00

PATIENT
  Sex: Female

DRUGS (2)
  1. HUMIRA [Suspect]
     Indication: PSORIASIS
     Dates: start: 20090701, end: 20100801
  2. PRENATAL [Concomitant]
     Indication: VITAMIN SUPPLEMENTATION

REACTIONS (1)
  - POSTPARTUM DEPRESSION [None]
